FAERS Safety Report 9098749 (Version 1)
Quarter: 2013Q1

REPORT INFORMATION
  Report Type: Spontaneous
  Country: US (occurrence: US)
  Receive Date: 20130213
  Receipt Date: 20130213
  Transmission Date: 20140127
  Serious: Yes (Other)
  Sender: FDA-Public Use
  Company Number: US-PFIZER INC-2013055492

PATIENT
  Age: 74 Year
  Sex: Male
  Weight: 82 kg

DRUGS (4)
  1. LYRICA [Suspect]
     Indication: INTERVERTEBRAL DISC DISORDER
     Dosage: 200 MG, 2X/DAY
     Dates: start: 2004, end: 201301
  2. NEURONTIN [Suspect]
     Indication: INTERVERTEBRAL DISC DISORDER
     Dosage: 300 MG, 3X/DAY
  3. MELOXICAM [Suspect]
     Indication: OSTEOARTHRITIS
     Dosage: 15 MG, 2X/DAY
  4. TAMSULOSIN HYDROCHLORIDE [Concomitant]
     Indication: BENIGN PROSTATIC HYPERPLASIA
     Dosage: 0.4 MG, 1X/DAY

REACTIONS (3)
  - Renal disorder [Unknown]
  - Skin burning sensation [Unknown]
  - Blood creatinine increased [Unknown]
